FAERS Safety Report 12581189 (Version 1)
Quarter: 2016Q3

REPORT INFORMATION
  Report Type: Spontaneous
  Country: US (occurrence: US)
  Receive Date: 20160721
  Receipt Date: 20160721
  Transmission Date: 20161109
  Serious: Yes (Other)
  Sender: FDA-Public Use
  Company Number: US-BAYER-2016-140821

PATIENT
  Age: 54 Year
  Sex: Female

DRUGS (2)
  1. CIPRO [Suspect]
     Active Substance: CIPROFLOXACIN HYDROCHLORIDE
     Indication: OTITIS MEDIA
     Dosage: UNK
     Dates: start: 20110602
  2. CIPRO [Suspect]
     Active Substance: CIPROFLOXACIN HYDROCHLORIDE
     Indication: BRONCHITIS

REACTIONS (23)
  - Neuromyopathy [None]
  - Nutritional condition abnormal [None]
  - Paraesthesia [None]
  - Depression [Not Recovered/Not Resolved]
  - Tarsal tunnel syndrome [None]
  - Amnesia [None]
  - Endocrine disorder [None]
  - Fatigue [None]
  - Small fibre neuropathy [None]
  - Respiratory symptom [None]
  - Neuropathy peripheral [None]
  - Cardiovascular symptom [None]
  - Burning sensation [None]
  - Connective tissue disorder [None]
  - Tendon rupture [None]
  - Mental status changes [None]
  - Unevaluable event [None]
  - Skin disorder [None]
  - Anxiety [Not Recovered/Not Resolved]
  - Pain [Not Recovered/Not Resolved]
  - Mitochondrial toxicity [None]
  - Neuropsychiatric syndrome [None]
  - Sensory disturbance [None]
